FAERS Safety Report 8513110-4 (Version None)
Quarter: 2012Q3

REPORT INFORMATION
  Report Type: 
  Country: None (occurrence: None)
  Receive Date: 20120716
  Receipt Date: 20120703
  Transmission Date: 20120928
  Serious: No
  Sender: FDA-Public Use
  Company Number: US-ASTRAZENECA-2012SE13406

PATIENT
  Age: 87 Year
  Sex: Female

DRUGS (1)
  1. NEXIUM [Suspect]
     Dosage: DAILY
     Route: 048

REACTIONS (4)
  - GASTRIC DISORDER [None]
  - INTENTIONAL DRUG MISUSE [None]
  - ARTHRITIS [None]
  - HYPOAESTHESIA [None]
